FAERS Safety Report 6534075-0 (Version None)
Quarter: 2010Q1

REPORT INFORMATION
  Report Type: 
  Country: None (occurrence: None)
  Receive Date: 20100112
  Receipt Date: 20100107
  Transmission Date: 20100710
  Serious: Yes (Hospitalization)
  Sender: FDA-Public Use
  Company Number: PHHO2009AU13020

PATIENT
  Sex: Female
  Weight: 53 kg

DRUGS (4)
  1. MYFORTIC [Suspect]
     Indication: RENAL TRANSPLANT
     Dosage: 500 MG, BID
     Route: 048
     Dates: start: 20081129, end: 20081217
  2. CERTICAN [Suspect]
     Indication: RENAL TRANSPLANT
     Dosage: UNK
     Route: 048
     Dates: start: 20081226, end: 20090329
  3. CYCLOSPORINE [Concomitant]
     Indication: RENAL TRANSPLANT
     Dosage: 75 MG, BID
     Route: 048
     Dates: start: 20081128
  4. STEROIDS NOS [Concomitant]
     Dosage: UNK
     Dates: start: 20091128

REACTIONS (6)
  - CATHETER REMOVAL [None]
  - CYSTOSCOPY [None]
  - DIZZINESS [None]
  - NAUSEA [None]
  - URETERAL STENT REMOVAL [None]
  - VOMITING [None]
